FAERS Safety Report 20231609 (Version 1)
Quarter: 2021Q4

REPORT INFORMATION
  Report Type: Spontaneous
  Country: US (occurrence: None)
  Receive Date: 20211223
  Receipt Date: 20211223
  Transmission Date: 20220303
  Serious: Yes (Other)
  Sender: FDA-Public Use
  Company Number: None

PATIENT
  Age: 39 Year
  Sex: Male
  Weight: 117 kg

DRUGS (14)
  1. AUBAGIO [Suspect]
     Active Substance: TERIFLUNOMIDE
     Indication: Multiple sclerosis
     Dosage: FREQUENCY : DAILY;?
     Route: 048
  2. GLATOPA [Suspect]
     Active Substance: GLATIRAMER ACETATE
  3. ATORVASTATIN [Concomitant]
     Active Substance: ATORVASTATIN
  4. B-12 supplement [Concomitant]
  5. Basalgar KwikPen [Concomitant]
  6. CYANOCOBALAMIN [Concomitant]
     Active Substance: CYANOCOBALAMIN
  7. FENOFIBRATE [Concomitant]
     Active Substance: FENOFIBRATE
  8. GABAPENTIN [Concomitant]
     Active Substance: GABAPENTIN
  9. HYDROCHLOROTHIAZIDE [Concomitant]
     Active Substance: HYDROCHLOROTHIAZIDE
  10. LOSARTAN [Concomitant]
     Active Substance: LOSARTAN
  11. METFORMIN HYDROCHLORIDE [Concomitant]
     Active Substance: METFORMIN HYDROCHLORIDE
  12. NOVOLOG [Concomitant]
     Active Substance: INSULIN ASPART
  13. RIZATRIPTAN [Concomitant]
     Active Substance: RIZATRIPTAN
  14. TOPIRAMATE [Concomitant]
     Active Substance: TOPIRAMATE

REACTIONS (1)
  - Drug ineffective [None]
